FAERS Safety Report 15404829 (Version 1)
Quarter: 2018Q3

REPORT INFORMATION
  Report Type: Spontaneous
  Country: US (occurrence: US)
  Receive Date: 20180918
  Receipt Date: 20180918
  Transmission Date: 20181010
  Serious: Yes (Hospitalization)
  Sender: FDA-Public Use
  Company Number: None

PATIENT
  Age: 7 Year
  Sex: Male

DRUGS (18)
  1. KEPPRA [Concomitant]
     Active Substance: LEVETIRACETAM
  2. ALBUTEROL. [Concomitant]
     Active Substance: ALBUTEROL
  3. ONFI [Concomitant]
     Active Substance: CLOBAZAM
  4. PULMICORT TURBUHALER [Concomitant]
     Active Substance: BUDESONIDE
  5. VIGABATRIN. [Suspect]
     Active Substance: VIGABATRIN
     Indication: EPILEPSY
     Route: 048
     Dates: start: 20160826
  6. CLONAZEPAM. [Concomitant]
     Active Substance: CLONAZEPAM
  7. LANSOPRAZOLE. [Concomitant]
     Active Substance: LANSOPRAZOLE
  8. RANITIDINE. [Concomitant]
     Active Substance: RANITIDINE
  9. NYSTATIN. [Concomitant]
     Active Substance: NYSTATIN
  10. DIAZEPAM. [Concomitant]
     Active Substance: DIAZEPAM
  11. SCOPOLAMINE [Concomitant]
     Active Substance: SCOPOLAMINE
  12. AMOX/K [Concomitant]
  13. SENNA?GRX [Concomitant]
  14. CLONIDINE. [Concomitant]
     Active Substance: CLONIDINE
  15. ERYTHROMYCIN. [Concomitant]
     Active Substance: ERYTHROMYCIN
  16. FLONASE [Concomitant]
     Active Substance: FLUTICASONE PROPIONATE
  17. IPRATROPIUM [Concomitant]
     Active Substance: IPRATROPIUM
  18. SODIUM CHLOR [Concomitant]
     Active Substance: SODIUM CHLORIDE

REACTIONS (1)
  - Hospitalisation [None]

NARRATIVE: CASE EVENT DATE: 20180917
